FAERS Safety Report 23038241 (Version 1)
Quarter: 2023Q4

REPORT INFORMATION
  Report Type: Spontaneous
  Country: US (occurrence: US)
  Receive Date: 20231006
  Receipt Date: 20231006
  Transmission Date: 20240109
  Serious: No
  Sender: FDA-Public Use
  Company Number: US-INDIVIOR US-INDV-138037-2023

PATIENT
  Age: 43 Year
  Sex: Female

DRUGS (1)
  1. SUBLOCADE [Suspect]
     Active Substance: BUPRENORPHINE
     Indication: Drug dependence
     Dosage: 300 MILLIGRAM, QMO
     Route: 058
     Dates: start: 20230208

REACTIONS (2)
  - Injection site exfoliation [Not Recovered/Not Resolved]
  - Injection site ischaemia [Not Recovered/Not Resolved]

NARRATIVE: CASE EVENT DATE: 20230208
